FAERS Safety Report 8427419-6 (Version None)
Quarter: 2012Q2

REPORT INFORMATION
  Report Type: 
  Country: None (occurrence: None)
  Receive Date: 20120323
  Receipt Date: 20110210
  Transmission Date: 20120825
  Serious: Yes (Other)
  Sender: FDA-Public Use
  Company Number: 163-21880-11021683

PATIENT
  Age: 61 Year
  Sex: Male

DRUGS (12)
  1. DEXAMETHASONE [Concomitant]
  2. REVLIMID [Suspect]
     Indication: MULTIPLE MYELOMA
     Dosage: 25 MG, 1 IN 1 D, PO ; 15 MG, 3 IN 1 D, PO ; 5 MG, 1 IN 1 D, PO ; 15 MG, PO
     Route: 048
     Dates: start: 20090201, end: 20110209
  3. REVLIMID [Suspect]
     Indication: MULTIPLE MYELOMA
     Dosage: 25 MG, 1 IN 1 D, PO ; 15 MG, 3 IN 1 D, PO ; 5 MG, 1 IN 1 D, PO ; 15 MG, PO
     Route: 048
     Dates: start: 20090101
  4. REVLIMID [Suspect]
     Indication: MULTIPLE MYELOMA
     Dosage: 25 MG, 1 IN 1 D, PO ; 15 MG, 3 IN 1 D, PO ; 5 MG, 1 IN 1 D, PO ; 15 MG, PO
     Route: 048
     Dates: start: 20070801
  5. REVLIMID [Suspect]
     Indication: MULTIPLE MYELOMA
     Dosage: 25 MG, 1 IN 1 D, PO ; 15 MG, 3 IN 1 D, PO ; 5 MG, 1 IN 1 D, PO ; 15 MG, PO
     Route: 048
     Dates: start: 20080901
  6. ZOMETA [Concomitant]
  7. LOTREL [Concomitant]
  8. VALIUM [Concomitant]
  9. WARFARIN SODIUM [Concomitant]
  10. ASPIRIN [Concomitant]
  11. OXYCONTIN [Concomitant]
  12. MULTIVITAMIN [Concomitant]

REACTIONS (1)
  - FATIGUE [None]
